FAERS Safety Report 4416736-2 (Version None)
Quarter: 2004Q3

REPORT INFORMATION
  Report Type: 
  Country: None (occurrence: None)
  Receive Date: 20040802
  Receipt Date: 20040722
  Transmission Date: 20050211
  Serious: Yes (Hospitalization)
  Sender: FDA-Public Use
  Company Number: ENT 2004-0146

PATIENT
  Age: 77 Year
  Sex: Female

DRUGS (6)
  1. COMTESS (ENTACAPONE) [Suspect]
     Dosage: 3
     Route: 048
     Dates: start: 20040429
  2. BELOC ZOC [Concomitant]
  3. NORVASC [Concomitant]
  4. L-THYROXIN [Concomitant]
  5. DYTIDE-H [Concomitant]
  6. ENALAPRIL MALEATE [Concomitant]

REACTIONS (3)
  - CIRCULATORY COLLAPSE [None]
  - LOSS OF CONSCIOUSNESS [None]
  - SUBDURAL HAEMATOMA [None]
